FAERS Safety Report 5889339-0 (Version None)
Quarter: 2008Q3

REPORT INFORMATION
  Report Type: 
  Country: None (occurrence: None)
  Receive Date: 20080908
  Receipt Date: 20080825
  Transmission Date: 20090109
  Serious: Yes (Hospitalization)
  Sender: FDA-Public Use
  Company Number: WSDF_00732

PATIENT
  Age: 25 Month
  Sex: Male

DRUGS (1)
  1. WINRHO SDF [Suspect]
     Indication: IDIOPATHIC THROMBOCYTOPENIC PURPURA
     Dates: start: 20080513, end: 20080513

REACTIONS (5)
  - DRUG INEFFECTIVE [None]
  - INTRAVASCULAR HAEMOLYSIS [None]
  - MARROW HYPERPLASIA [None]
  - PLATELET COUNT DECREASED [None]
  - WHITE BLOOD CELL COUNT INCREASED [None]
